FAERS Safety Report 13734276 (Version 2)
Quarter: 2017Q3

REPORT INFORMATION
  Report Type: Spontaneous
  Country: JP (occurrence: JP)
  Receive Date: 20170708
  Receipt Date: 20170808
  Transmission Date: 20171127
  Serious: No
  Sender: FDA-Public Use
  Company Number: JP-009507513-1705JPN001185J

PATIENT
  Age: 53 Year
  Sex: Female
  Weight: 45 kg

DRUGS (13)
  1. FILGRASTIM(GENETICAL RECOMBINATION) [Concomitant]
     Active Substance: FILGRASTIM
     Indication: BONE MARROW TRANSPLANT
     Dosage: 300 MICROGRAM, QD
     Route: 051
     Dates: start: 20160426
  2. VICCLOX [Concomitant]
     Active Substance: ACYCLOVIR SODIUM
     Indication: INFECTION PROPHYLAXIS
     Dosage: 250 MG, QD
     Route: 051
     Dates: start: 20160421
  3. SERENACE [Concomitant]
     Active Substance: HALOPERIDOL
     Indication: INSOMNIA
     Dosage: 2.5 MG, QD
     Route: 051
     Dates: start: 20160505, end: 20160509
  4. PROGRAF [Concomitant]
     Active Substance: TACROLIMUS\TACROLIMUS ANHYDROUS
     Indication: IMMUNOSUPPRESSION
     Dosage: 1.4 MG, PRN
     Route: 051
     Dates: start: 20160420
  5. FENTANYL. [Concomitant]
     Active Substance: FENTANYL
     Indication: ORAL PAIN
     Dosage: 0.1 MG, QD
     Route: 051
     Dates: start: 20160516
  6. VANCOMYCIN [Concomitant]
     Active Substance: VANCOMYCIN
     Indication: FEBRILE NEUTROPENIA
     Dosage: 0.5 G, QD
     Route: 051
     Dates: start: 20160420
  7. NONTHRON [Concomitant]
     Indication: DISSEMINATED INTRAVASCULAR COAGULATION
     Dosage: 1.5 G, QD
     Route: 051
     Dates: start: 20160506, end: 20160508
  8. TAKEPRON [Concomitant]
     Active Substance: LANSOPRAZOLE
     Indication: GASTRIC ULCER
     Dosage: 30 MG, BID
     Route: 051
     Dates: start: 20160501
  9. MICAFUNGIN SODIUM [Concomitant]
     Active Substance: MICAFUNGIN SODIUM
     Indication: FEBRILE NEUTROPENIA
     Dosage: 50 MG, UNK
     Route: 041
     Dates: start: 20160414, end: 20160504
  10. MEROPENEM. [Concomitant]
     Active Substance: MEROPENEM
     Indication: FEBRILE NEUTROPENIA
     Dosage: 1 G, BID
     Route: 051
     Dates: start: 20160427
  11. HANP [Concomitant]
     Active Substance: CARPERITIDE
     Indication: CAPILLARY PERMEABILITY INCREASED
     Dosage: 50 MG, QD
     Route: 051
     Dates: start: 20160502, end: 20160509
  12. CANCIDAS [Suspect]
     Active Substance: CASPOFUNGIN ACETATE
     Indication: FEBRILE NEUTROPENIA
     Dosage: 50 MG, QD
     Route: 041
     Dates: start: 20160505, end: 20160519
  13. METOCLOPRAMIDE. [Concomitant]
     Active Substance: METOCLOPRAMIDE
     Indication: NAUSEA
     Dosage: 10 MG, BID
     Route: 051
     Dates: start: 20160501

REACTIONS (2)
  - Pain [Recovering/Resolving]
  - Hepatic enzyme increased [Not Recovered/Not Resolved]

NARRATIVE: CASE EVENT DATE: 20160512
